FAERS Safety Report 17262497 (Version 1)
Quarter: 2019Q4

REPORT INFORMATION
  Report Type: Spontaneous
  Country: US (occurrence: US)
  Receive Date: 20191218
  Receipt Date: 20191218
  Transmission Date: 20200122
  Serious: Yes (Other)
  Sender: FDA-Public Use
  Company Number: None

PATIENT
  Sex: Female

DRUGS (1)
  1. BIOALLERS SINUS AND ALLERGY [Suspect]
     Active Substance: HOMEOPATHICS
     Dosage: ?          OTHER DOSE:2 SPRAYS IN EACH N;?
     Route: 045

REACTIONS (1)
  - Tachycardia [None]

NARRATIVE: CASE EVENT DATE: 20190923
